FAERS Safety Report 10032685 (Version 2)
Quarter: 2014Q2

REPORT INFORMATION
  Report Type: Spontaneous
  Country: GB (occurrence: GB)
  Receive Date: 20140324
  Receipt Date: 20140423
  Transmission Date: 20141212
  Serious: Yes (Death)
  Sender: FDA-Public Use
  Company Number: GB-GLAXOSMITHKLINE-B0976274A

PATIENT
  Age: 63 Year
  Sex: Male

DRUGS (14)
  1. SERETIDE [Suspect]
  2. HUMALOG [Suspect]
  3. HUMULIN [Suspect]
  4. BIPHASIC ISOPHANE INSULIN [Suspect]
  5. FOSAMAX [Suspect]
     Dosage: 70MG WEEKLY
     Route: 048
  6. SINGULAIR [Suspect]
     Route: 048
  7. SPIRIVA [Suspect]
     Indication: CHRONIC OBSTRUCTIVE PULMONARY DISEASE
  8. ACETAMINOPHEN [Suspect]
     Route: 048
  9. ALBUTEROL [Suspect]
     Route: 055
  10. BUMETANIDE [Suspect]
  11. LISINOPRIL [Suspect]
     Route: 048
  12. NYSTATIN [Suspect]
  13. TRAMADOL HYDROCHLORIDE [Suspect]
     Dosage: 50MG PER DAY
  14. INSUMAN COMB [Suspect]

REACTIONS (1)
  - Lobar pneumonia [Fatal]
